FAERS Safety Report 7465804-X (Version None)
Quarter: 2011Q2

REPORT INFORMATION
  Report Type: 
  Country: None (occurrence: None)
  Receive Date: 20110509
  Receipt Date: 20101119
  Transmission Date: 20111010
  Serious: No
  Sender: FDA-Public Use
  Company Number: US-SANOFI-AVENTIS-2010SA072172

PATIENT
  Sex: Female

DRUGS (2)
  1. APIDRA [Suspect]
     Route: 058
  2. LANTUS [Suspect]

REACTIONS (1)
  - PAIN IN EXTREMITY [None]
